FAERS Safety Report 8979702 (Version 2)
Quarter: 2013Q2

REPORT INFORMATION
  Report Type: Report from Study
  Country: MX (occurrence: MX)
  Receive Date: 20121221
  Receipt Date: 20130521
  Transmission Date: 20140414
  Serious: Yes (Other)
  Sender: FDA-Public Use
  Company Number: PHHY2012MX118194

PATIENT
  Age: 68 Year
  Sex: Female

DRUGS (4)
  1. CO-DIOVAN [Suspect]
     Indication: HYPERTENSION
     Dosage: 1 DF (160 MG VALS,12.5 MG HYDR), DAILY
     Route: 048
     Dates: start: 2011, end: 20121213
  2. OMEPRAZOLE [Concomitant]
     Indication: HIATUS HERNIA
     Dosage: 1 DF, DAILY
     Dates: start: 201202
  3. EUTIROX [Concomitant]
     Indication: HYPOTHYROIDISM
     Dosage: 75 MG, DAILY
  4. LEXOTAN [Concomitant]
     Indication: STRESS
     Dosage: 3 MG, DAILY
     Dates: start: 1990

REACTIONS (6)
  - Arrhythmia [Not Recovered/Not Resolved]
  - Anxiety [Unknown]
  - Blood pressure increased [Not Recovered/Not Resolved]
  - Tinnitus [Not Recovered/Not Resolved]
  - Headache [Not Recovered/Not Resolved]
  - Fatigue [Not Recovered/Not Resolved]
